FAERS Safety Report 8943587 (Version 1)
Quarter: 2012Q4

REPORT INFORMATION
  Report Type: 
  Country: US (occurrence: US)
  Receive Date: 20121204
  Receipt Date: 20121204
  Transmission Date: 20130627
  Serious: No
  Sender: FDA-Public Use
  Company Number: US-PFIZER INC-2012299203

PATIENT
  Age: 64 Year
  Sex: Female
  Weight: 124 kg

DRUGS (1)
  1. TOVIAZ [Suspect]
     Dosage: UNK
     Dates: start: 201211

REACTIONS (1)
  - Enuresis [Unknown]
